FAERS Safety Report 8852459 (Version 1)
Quarter: 2012Q4

REPORT INFORMATION
  Report Type: Spontaneous
  Country: US (occurrence: None)
  Receive Date: 20121017
  Receipt Date: 20121017
  Transmission Date: 20130627
  Serious: Yes (Other)
  Sender: FDA-Public Use
  Company Number: 2012MA012013

PATIENT

DRUGS (2)
  1. M-ZOLE [Suspect]
     Indication: YEAST INFECTION
     Route: 067
     Dates: start: 20120923, end: 20120923
  2. M-ZOLE [Suspect]
     Indication: YEAST INFECTION

REACTIONS (8)
  - Pain [None]
  - Burning sensation [None]
  - Pruritus [None]
  - Hypersensitivity [None]
  - Inflammation [None]
  - Tenderness [None]
  - Drug ineffective [None]
  - Swelling [None]
